FAERS Safety Report 6379061-9 (Version None)
Quarter: 2009Q3

REPORT INFORMATION
  Report Type: 
  Country: None (occurrence: None)
  Receive Date: 20090928
  Receipt Date: 20090915
  Transmission Date: 20100115
  Serious: Yes (Other)
  Sender: FDA-Public Use
  Company Number: US-PFIZER INC-2009270400

PATIENT
  Age: 33 Year
  Sex: Female
  Weight: 89.342 kg

DRUGS (2)
  1. CADUET [Suspect]
     Dosage: 10MG/ 10MG
     Dates: start: 20090914
  2. ALDOMET [Concomitant]
     Indication: HYPERTENSION
     Dosage: UNK

REACTIONS (1)
  - LABILE BLOOD PRESSURE [None]
